FAERS Safety Report 9004635 (Version 2)
Quarter: 2013Q1

REPORT INFORMATION
  Report Type: Spontaneous
  Country: US (occurrence: US)
  Receive Date: 20130109
  Receipt Date: 20130211
  Transmission Date: 20140127
  Serious: No
  Sender: FDA-Public Use
  Company Number: US-PFIZER INC-2013007978

PATIENT
  Age: 57 Year
  Sex: Female
  Weight: 49 kg

DRUGS (7)
  1. CHANTIX [Suspect]
     Indication: SMOKING CESSATION THERAPY
     Dosage: 0.5 MG, DAILY
     Route: 048
     Dates: start: 20130103
  2. CHANTIX [Suspect]
     Indication: SMOKING CESSATION THERAPY
     Dosage: 1 MG, 2X/DAY
     Route: 048
     Dates: start: 20130108
  3. ESTRADIOL [Concomitant]
     Indication: HOT FLUSH
     Dosage: 0.5 MG, 1X/DAY
     Dates: start: 201208
  4. ESTRADIOL [Concomitant]
     Indication: HORMONE REPLACEMENT THERAPY
  5. MEDROXYPROGESTERONE [Concomitant]
     Indication: HOT FLUSH
     Dosage: 2.5 MG, 1X/DAY
     Dates: start: 201208
  6. MEDROXYPROGESTERONE [Concomitant]
     Indication: HORMONE REPLACEMENT THERAPY
  7. ATROVENT [Concomitant]
     Indication: COUGH
     Dosage: UNK, 2 PUFFS 4X/D PRN
     Dates: start: 201211

REACTIONS (3)
  - Expired drug administered [Unknown]
  - Abnormal dreams [Unknown]
  - Dry mouth [Unknown]
